FAERS Safety Report 6827587-3 (Version None)
Quarter: 2010Q3

REPORT INFORMATION
  Report Type: 
  Country: None (occurrence: None)
  Receive Date: 20100709
  Receipt Date: 20070119
  Transmission Date: 20110219
  Serious: No
  Sender: FDA-Public Use
  Company Number: US-PFIZER INC-2007006114

PATIENT
  Age: 47 Year
  Sex: Female
  Weight: 88.45 kg

DRUGS (3)
  1. CHANTIX [Suspect]
     Indication: SMOKING CESSATION THERAPY
     Dates: start: 20070101
  2. VITAMIN C [Concomitant]
  3. MULTI-VITAMINS [Concomitant]

REACTIONS (3)
  - ABNORMAL DREAMS [None]
  - FLATULENCE [None]
  - THIRST [None]
